FAERS Safety Report 20078788 (Version 1)
Quarter: 2021Q4

REPORT INFORMATION
  Report Type: Spontaneous
  Country: US (occurrence: US)
  Receive Date: 20211117
  Receipt Date: 20211117
  Transmission Date: 20220303
  Serious: Yes (Other)
  Sender: FDA-Public Use
  Company Number: US-NOVARTISPH-NVSC2021US260506

PATIENT
  Age: 50 Year
  Sex: Female

DRUGS (4)
  1. RANITIDINE [Suspect]
     Active Substance: RANITIDINE
     Indication: Erosive oesophagitis
     Dosage: UNK, QD
     Route: 065
     Dates: start: 200001, end: 201501
  2. RANITIDINE [Suspect]
     Active Substance: RANITIDINE
     Indication: Dyspepsia
  3. RANITIDINE [Suspect]
     Active Substance: RANITIDINE
     Indication: Erosive oesophagitis
     Dosage: UNK, QD
     Route: 065
     Dates: start: 200001, end: 201501
  4. RANITIDINE [Suspect]
     Active Substance: RANITIDINE
     Indication: Dyspepsia

REACTIONS (1)
  - Breast cancer stage III [Recovering/Resolving]

NARRATIVE: CASE EVENT DATE: 20170130
